FAERS Safety Report 20075828 (Version 1)
Quarter: 2021Q4

REPORT INFORMATION
  Report Type: Report from Study
  Country: US (occurrence: US)
  Receive Date: 20211116
  Receipt Date: 20211116
  Transmission Date: 20220303
  Serious: Yes (Other)
  Sender: FDA-Public Use
  Company Number: US-JNJFOC-20211121961

PATIENT
  Age: 55 Year
  Sex: Male

DRUGS (2)
  1. SPRAVATO [Suspect]
     Active Substance: ESKETAMINE
     Indication: Depression
     Dosage: 56 MG ONE DOSE
     Dates: start: 20211102, end: 20211102
  2. SPRAVATO [Suspect]
     Active Substance: ESKETAMINE
     Dosage: 112 MG ONE RECENT DOSE
     Dates: start: 20211104

REACTIONS (2)
  - Extra dose administered [Recovered/Resolved]
  - Dissociation [Recovered/Resolved]

NARRATIVE: CASE EVENT DATE: 20211104
